FAERS Safety Report 23905869 (Version 1)
Quarter: 2024Q2

REPORT INFORMATION
  Report Type: Report from Study
  Country: EG (occurrence: EG)
  Receive Date: 20240527
  Receipt Date: 20240527
  Transmission Date: 20240716
  Serious: Yes (Hospitalization, Other)
  Sender: FDA-Public Use
  Company Number: EG-002147023-NVSC2024EG110518

PATIENT
  Age: 52 Year
  Sex: Female

DRUGS (5)
  1. ENTRESTO [Suspect]
     Active Substance: SACUBITRIL\VALSARTAN
     Indication: Cardiac failure
     Dosage: 50 MG, 1/2.TAB. TWICE DAILY
     Route: 048
     Dates: end: 202404
  2. ENTRESTO [Suspect]
     Active Substance: SACUBITRIL\VALSARTAN
     Dosage: 50 MG, BID, 1.TAB. TWICE DAILY
     Route: 048
     Dates: start: 202404
  3. CORDARONE [Concomitant]
     Active Substance: AMIODARONE HYDROCHLORIDE
     Indication: Cardiac disorder
     Dosage: 200 MG, QD (1.TAB. ONCE DAILY)
     Route: 048
  4. ALDACTONE [Concomitant]
     Active Substance: SPIRONOLACTONE
     Indication: Oliguria
     Dosage: HALF TAB. IN THE MORNING
     Route: 048
  5. METOPROLOL TARTRATE [Concomitant]
     Active Substance: METOPROLOL TARTRATE
     Indication: Cardiac disorder
     Dosage: 50 MG, QD 1 TAB. ONCE DAILY
     Route: 048

REACTIONS (3)
  - Heart rate irregular [Not Recovered/Not Resolved]
  - Syncope [Unknown]
  - Off label use [Unknown]

NARRATIVE: CASE EVENT DATE: 20240407
